FAERS Safety Report 7550107-5 (Version None)
Quarter: 2011Q2

REPORT INFORMATION
  Report Type: 
  Country: None (occurrence: None)
  Receive Date: 20110615
  Receipt Date: 20110606
  Transmission Date: 20111010
  Serious: Yes (Hospitalization)
  Sender: FDA-Public Use
  Company Number: DE-ASTRAZENECA-2011SE35029

PATIENT
  Age: 74 Year
  Sex: Female

DRUGS (10)
  1. SEROQUEL [Suspect]
     Route: 048
     Dates: start: 20100801, end: 20101229
  2. LORAZEPAM [Suspect]
     Route: 048
     Dates: start: 20101223, end: 20101228
  3. LORAZEPAM [Suspect]
     Route: 048
     Dates: start: 20101229
  4. AMITRIPTYLINE HCL [Suspect]
     Route: 048
     Dates: start: 20101223, end: 20101227
  5. SERTRALINE HYDROCHLORIDE [Concomitant]
  6. SEROQUEL [Suspect]
     Route: 048
     Dates: start: 20101230
  7. DEPAKENE [Suspect]
     Route: 048
     Dates: start: 20100801, end: 20101228
  8. DEPAKENE [Suspect]
     Route: 048
     Dates: start: 20101229, end: 20101229
  9. AMITRIPTYLINE HCL [Suspect]
     Route: 048
     Dates: start: 20101228, end: 20110102
  10. AMITRIPTYLINE HCL [Suspect]
     Route: 048
     Dates: start: 20110103

REACTIONS (1)
  - ENCEPHALOPATHY [None]
